FAERS Safety Report 10386213 (Version 1)
Quarter: 2014Q3

REPORT INFORMATION
  Report Type: Spontaneous
  Country: FR (occurrence: FR)
  Receive Date: 20140814
  Receipt Date: 20140814
  Transmission Date: 20150326
  Serious: Yes (Hospitalization)
  Sender: FDA-Public Use
  Company Number: PHHY2014FR099899

PATIENT
  Age: 61 Year
  Sex: Male

DRUGS (4)
  1. CARBOCISTEINE [Concomitant]
     Active Substance: CARBOCYSTEINE
     Indication: LUNG DISORDER
     Dosage: UNK UKN, UNK
     Dates: start: 20140218, end: 20140224
  2. VOLTARENE [Suspect]
     Active Substance: DICLOFENAC SODIUM
     Indication: BACK PAIN
     Dosage: UNK UKN, UNK
     Route: 048
     Dates: start: 20140214, end: 20140224
  3. DAFALGAN [Concomitant]
     Active Substance: ACETAMINOPHEN
     Indication: LUNG DISORDER
     Dosage: UNK UKN, UNK
     Dates: start: 20140218, end: 20140224
  4. AMOXICILLIN. [Suspect]
     Active Substance: AMOXICILLIN
     Dosage: 1 DF, TID
     Dates: start: 20140218, end: 20140224

REACTIONS (2)
  - Lymphopenia [Recovered/Resolved]
  - Neutropenia [Recovered/Resolved]

NARRATIVE: CASE EVENT DATE: 201402
